FAERS Safety Report 7630215-0 (Version None)
Quarter: 2011Q3

REPORT INFORMATION
  Report Type: 
  Country: None (occurrence: None)
  Receive Date: 20110722
  Receipt Date: 20110719
  Transmission Date: 20111222
  Serious: Yes (Death, Hospitalization)
  Sender: FDA-Public Use
  Company Number: PHHY2011US47166

PATIENT
  Sex: Male

DRUGS (9)
  1. LASIX [Concomitant]
     Dosage: 20 MG, UNK
     Route: 065
  2. AMANTADINE HCL [Concomitant]
     Dosage: 100 MG, UNK
     Route: 065
  3. ASPIRIN [Concomitant]
     Dosage: 81 MG, UNK
     Route: 065
  4. GLEEVEC [Suspect]
     Dosage: 400 MG, BID
     Route: 048
  5. GABAPENTIN [Concomitant]
     Dosage: 100 MG, UNK
     Route: 065
  6. TRIHEXYPHENIDYL [Concomitant]
     Dosage: 2 MG, UNK
  7. LOVAZA [Concomitant]
     Route: 065
  8. TRAMADOL HYDROCHLORIDE [Concomitant]
     Dosage: 50 MG, UNK
     Route: 065
  9. VITAMIN B-12 [Concomitant]
     Route: 065

REACTIONS (5)
  - PAIN [None]
  - RENAL FAILURE ACUTE [None]
  - PNEUMONIA [None]
  - RENAL FAILURE CHRONIC [None]
  - SEPSIS [None]
